FAERS Safety Report 6702034-0 (Version None)
Quarter: 2010Q2

REPORT INFORMATION
  Report Type: 
  Country: None (occurrence: None)
  Receive Date: 20100429
  Receipt Date: 20100419
  Transmission Date: 20101027
  Serious: Yes (Other)
  Sender: FDA-Public Use
  Company Number: US-PFIZER INC-2010049844

PATIENT
  Sex: Male
  Weight: 96.145 kg

DRUGS (6)
  1. VIAGRA [Suspect]
     Dosage: UNK
     Dates: start: 20070601
  2. FUROSEMIDE [Concomitant]
     Dosage: UNK
  3. POTASSIUM CHLORIDE [Concomitant]
     Dosage: UNK
  4. ACETYLSALICYLIC ACID [Concomitant]
     Dosage: 81 MG, UNK
  5. IBUPROFEN [Concomitant]
     Dosage: 600 MG, UNK
  6. TRAZODONE [Concomitant]
     Indication: DEPRESSION
     Dosage: UNK

REACTIONS (6)
  - ANTICIPATORY ANXIETY [None]
  - DRUG EFFECT DELAYED [None]
  - MIGRAINE [None]
  - NAUSEA [None]
  - OEDEMA PERIPHERAL [None]
  - PERIPHERAL VASCULAR DISORDER [None]
